FAERS Safety Report 12136215 (Version 1)
Quarter: 2016Q1

REPORT INFORMATION
  Report Type: Spontaneous
  Country: NL (occurrence: NL)
  Receive Date: 20160302
  Receipt Date: 20160302
  Transmission Date: 20160526
  Serious: Yes (Other)
  Sender: FDA-Public Use
  Company Number: NL-TEVA-636762ACC

PATIENT
  Age: 65 Year
  Sex: Female
  Weight: 75 kg

DRUGS (3)
  1. CLINDAMYCINE TEVA CAPSULE 300MG [Suspect]
     Active Substance: CLINDAMYCIN PHOSPHATE
     Indication: PRODUCT USED FOR UNKNOWN INDICATION
     Dosage: 600 MILLIGRAM DAILY; 300 MG; TWICE DAILY ONE PIECE
     Route: 048
     Dates: start: 20160122
  2. OXCARBAZEPINE TABLET FO 300MG [Concomitant]
     Dosage: TWICE DAILY 3.5 PIECE, EXTRA INFO: 750 MG/DAY
     Route: 048
     Dates: start: 20141001
  3. LITHIUMCARBONAAT TABLET 200MG [Concomitant]
     Dosage: 600 MILLIGRAM DAILY; TWICE DAILY 1.5 PIECE, EXTRA INFO: 600 MG A DAY
     Route: 048
     Dates: start: 20141001

REACTIONS (2)
  - Depressed mood [Not Recovered/Not Resolved]
  - Suicidal ideation [Recovering/Resolving]

NARRATIVE: CASE EVENT DATE: 20160123
